FAERS Safety Report 8001358-7 (Version None)
Quarter: 2011Q4

REPORT INFORMATION
  Report Type: 
  Country: None (occurrence: None)
  Receive Date: 20111222
  Receipt Date: 20111220
  Transmission Date: 20120403
  Serious: Yes (Hospitalization, Other)
  Sender: FDA-Public Use
  Company Number: CH-PFIZER INC-2011308371

PATIENT
  Age: 39 Year
  Sex: Female

DRUGS (3)
  1. ACETAMINOPHEN [Suspect]
     Indication: URINARY TRACT INFECTION
     Dosage: 1 G, 1X/DAY
     Dates: start: 20111001, end: 20111101
  2. EFFEXOR XR [Suspect]
     Indication: DEPRESSION
     Dosage: INCREASING DOSAGES FROM 75 MG UP TO 375 MG PER DAY
     Route: 048
  3. EFFEXOR XR [Suspect]
     Dosage: 300 MG, 1X/DAY
     Route: 048
     Dates: end: 20111115

REACTIONS (4)
  - HEPATOCELLULAR INJURY [None]
  - PANCREATIC ENZYMES INCREASED [None]
  - URINARY TRACT INFECTION [None]
  - HEPATITIS CHOLESTATIC [None]
